FAERS Safety Report 8254886-3 (Version None)
Quarter: 2012Q2

REPORT INFORMATION
  Report Type: 
  Country: None (occurrence: None)
  Receive Date: 20120403
  Receipt Date: 20120328
  Transmission Date: 20120825
  Serious: Yes (Hospitalization)
  Sender: FDA-Public Use
  Company Number: US-PFIZER INC-2012079866

PATIENT
  Sex: Female
  Weight: 86.168 kg

DRUGS (6)
  1. METFORMIN [Concomitant]
     Dosage: UNK
  2. NEURONTIN [Suspect]
     Indication: PAIN
     Dosage: 800 MG, 2X/DAY
     Route: 048
  3. INDERAL [Concomitant]
     Dosage: UNK
  4. ACIPHEX [Concomitant]
     Dosage: UNK
  5. PREMARIN [Concomitant]
     Dosage: UNK
  6. NEURONTIN [Suspect]
     Indication: CONVULSION

REACTIONS (1)
  - CONVULSION [None]
